FAERS Safety Report 14141146 (Version 8)
Quarter: 2018Q4

REPORT INFORMATION
  Report Type: Spontaneous
  Country: US (occurrence: US)
  Receive Date: 20171030
  Receipt Date: 20181130
  Transmission Date: 20190204
  Serious: Yes (Other)
  Sender: FDA-Public Use
  Company Number: US-PFIZER INC-2017465711

PATIENT
  Age: 77 Year
  Sex: Female
  Weight: 61.23 kg

DRUGS (1)
  1. XELJANZ XR [Suspect]
     Active Substance: TOFACITINIB CITRATE
     Indication: RHEUMATOID ARTHRITIS
     Dosage: 11 MG, 1X/DAY (EVERY MORNING)
     Route: 048
     Dates: start: 2018

REACTIONS (10)
  - Drug effect incomplete [Unknown]
  - Dry mouth [Unknown]
  - Malaise [Unknown]
  - Rhinorrhoea [Unknown]
  - Dyspnoea [Unknown]
  - Faeces hard [Unknown]
  - White blood cell count increased [Recovering/Resolving]
  - Lacrimation increased [Unknown]
  - Hypoaesthesia [Unknown]
  - Productive cough [Unknown]

NARRATIVE: CASE EVENT DATE: 2018
